FAERS Safety Report 20768129 (Version 1)
Quarter: 2022Q2

REPORT INFORMATION
  Report Type: Spontaneous
  Country: US (occurrence: US)
  Receive Date: 20220429
  Receipt Date: 20220429
  Transmission Date: 20220720
  Serious: Yes (Other)
  Sender: FDA-Public Use
  Company Number: US-ADVANZ PHARMA-202204002416

PATIENT

DRUGS (13)
  1. ZONISAMIDE [Suspect]
     Active Substance: ZONISAMIDE
     Indication: Euphoric mood
     Dosage: 100 MG, BID,ZONEGRAN
     Dates: start: 202201, end: 20220420
  2. ZONISAMIDE [Suspect]
     Active Substance: ZONISAMIDE
     Indication: Neuralgia
  3. ZONISAMIDE [Suspect]
     Active Substance: ZONISAMIDE
     Indication: Muscle spasms
  4. ALPRAZOLAM [Concomitant]
     Active Substance: ALPRAZOLAM
     Dosage: 0.5 MG, TID
  5. GABAPENTIN [Concomitant]
     Active Substance: GABAPENTIN
     Dosage: 100 MG, TID
  6. BENTYL [Concomitant]
     Active Substance: DICYCLOMINE HYDROCHLORIDE
     Dosage: 10 MG, TID
  7. BACLOFEN [Concomitant]
     Active Substance: BACLOFEN
     Dosage: 20 MG, TID
  8. TEMAZEPAM [Concomitant]
     Active Substance: TEMAZEPAM
     Dosage: 30 MG, QD
  9. MAGNESIUM GLYCINATE [Concomitant]
     Active Substance: MAGNESIUM GLYCINATE
     Dosage: UNK, QD
  10. CALCIUM CITRATE [Concomitant]
     Active Substance: CALCIUM CITRATE
     Dosage: UNK, QD
  11. VITAMIN D3 [Concomitant]
     Active Substance: CHOLECALCIFEROL
     Dosage: UNK, QD
  12. VITAMIN B COMPLEX [Concomitant]
     Active Substance: CYANOCOBALAMIN\DEXPANTHENOL\NIACINAMIDE\PYRIDOXINE HYDROCHLORIDE\RIBOFLAVIN 5^-PHOSPHATE SODIUM\THIA
     Dosage: UNK, QD
  13. B 12 Sublingual [Concomitant]
     Dosage: UNK, QD
     Route: 060

REACTIONS (7)
  - Haemorrhage [Not Recovered/Not Resolved]
  - Ascites [Not Recovered/Not Resolved]
  - Syncope [Not Recovered/Not Resolved]
  - Peripheral swelling [Not Recovered/Not Resolved]
  - Asthenia [Not Recovered/Not Resolved]
  - Rash macular [Not Recovered/Not Resolved]
  - Dizziness [Not Recovered/Not Resolved]
